FAERS Safety Report 8805843 (Version 1)
Quarter: 2012Q4

REPORT INFORMATION
  Report Type: Spontaneous
  Country: US (occurrence: None)
  Receive Date: 20120919
  Receipt Date: 20120919
  Transmission Date: 20130627
  Serious: Yes (Hospitalization)
  Sender: FDA-Public Use
  Company Number: None

PATIENT
  Age: 55 Year
  Sex: Female
  Weight: 64 kg

DRUGS (1)
  1. OXCARBAZEPINE [Suspect]
     Indication: FACIAL PAIN
     Route: 048
     Dates: start: 20110302, end: 20120627

REACTIONS (2)
  - Grand mal convulsion [None]
  - Confusional state [None]
